FAERS Safety Report 19382607 (Version 2)
Quarter: 2021Q2

REPORT INFORMATION
  Report Type: Report from Study
  Country: PL (occurrence: PL)
  Receive Date: 20210607
  Receipt Date: 20210616
  Transmission Date: 20210717
  Serious: Yes (Death, Hospitalization)
  Sender: FDA-Public Use
  Company Number: PL-ROCHE-2842325

PATIENT
  Age: 53 Year
  Sex: Male
  Weight: 62 kg

DRUGS (14)
  1. AMERTIL [Concomitant]
     Active Substance: CETIRIZINE HYDROCHLORIDE
     Dates: start: 20210301
  2. DEPAKINE [Concomitant]
     Active Substance: VALPROATE SODIUM
     Dates: start: 20130426, end: 20200201
  3. ALERMED [Concomitant]
     Active Substance: CETIRIZINE HYDROCHLORIDE
     Dosage: SUBSEQUENT DOSE OF ALERMED ON  07/DEC/2012, 08/MAY/2013, 24/MAY/2013, 09/APR/2014, 25/APR/2014, 09/O
     Dates: start: 20121122, end: 20121122
  4. ASPARGIN [Concomitant]
     Active Substance: ASPARTIC ACID
     Indication: MUSCLE SPASMS
     Dates: start: 20121022, end: 20121205
  5. PARACETAMOL [Concomitant]
     Active Substance: ACETAMINOPHEN
     Dosage: SUBSEQUENT DOSE OF PARACETAMOL ON  07/DEC/2012, 08/MAY/2013, 24/MAY/2013, 26/SEP/2014, 09/OCT/2014,
     Dates: start: 20121122
  6. METHYLPREDNISOLONE. [Concomitant]
     Active Substance: METHYLPREDNISOLONE
     Dosage: SUBSEQUENT DOSE OF METHYLPREDNISOLONE ON 07/DEC/2012, 08/MAY/2013, 24/MAY/2013, 24/OCT/2013, 06/NOV/
     Dates: start: 20121122
  7. CYCLO 3 FORT [Concomitant]
     Active Substance: ASCORBIC ACID\HESPERIDIN METHYLCHALCONE\RUSCUS ACULEATUS ROOT
     Indication: MUSCLE SPASMS
     Dates: start: 20121020, end: 20121205
  8. OCRELIZUMAB. [Suspect]
     Active Substance: OCRELIZUMAB
     Indication: PRIMARY PROGRESSIVE MULTIPLE SCLEROSIS
     Dosage: FREQUENCY: DUAL INFUSIONS SEPARATED BY 14 DAYS AT A SCHEDULED INTERVAL OF EVERY 24 WEEKS (AS PER PRO
     Route: 042
     Dates: start: 20121122
  9. DEPRALIN [Concomitant]
     Dates: start: 20101213, end: 20120601
  10. PANADOL [Concomitant]
     Active Substance: ACETAMINOPHEN
     Dosage: SUBSEQUENT DOSE OF PANADOL ON 06/NOV/2013, 09/APR/2014 AND 25/APR/2014.
     Dates: start: 20131024
  11. OCRELIZUMAB. [Suspect]
     Active Substance: OCRELIZUMAB
     Indication: PRIMARY PROGRESSIVE MULTIPLE SCLEROSIS
     Dosage: TWO IV INFUSIONS OF OCRELIZUMAB 300 MG FOR CYCLE 1 AND SINGLE IV INFUSION OF OCRELIZUMAB 600 MG FOR
     Route: 042
     Dates: start: 20160210
  12. OCRELIZUMAB. [Suspect]
     Active Substance: OCRELIZUMAB
     Dosage: SUBSEQUENT DOSE OF OCRELIZUMAB ON 03/JUL/2017 (520 ML), 11/DEC/2017, 29/MAY/2018 (520 ML) , 19/NOV/2
     Route: 042
     Dates: start: 20170112
  13. DEPRALIN [Concomitant]
     Dates: start: 20130120, end: 20130425
  14. DEPRALIN [Concomitant]
     Dates: start: 20151001, end: 20160101

REACTIONS (1)
  - COVID-19 [Fatal]

NARRATIVE: CASE EVENT DATE: 20210410
